FAERS Safety Report 5297245-8 (Version None)
Quarter: 2007Q2

REPORT INFORMATION
  Report Type: 
  Country: None (occurrence: None)
  Receive Date: 20070416
  Receipt Date: 20070413
  Transmission Date: 20071010
  Serious: Yes (Other)
  Sender: FDA-Public Use
  Company Number: US-JNJFOC-20070402813

PATIENT
  Sex: Female
  Weight: 25.4 kg

DRUGS (5)
  1. INFLIXIMAB, RECOMBINANT [Suspect]
     Indication: CROHN'S DISEASE
     Route: 042
  2. PENTASA [Concomitant]
  3. ENTOCORT [Concomitant]
  4. PREVACID [Concomitant]
  5. SINGULAIR [Concomitant]

REACTIONS (1)
  - MEMORY IMPAIRMENT [None]
